FAERS Safety Report 23725128 (Version 1)
Quarter: 2024Q2

REPORT INFORMATION
  Report Type: Other
  Country: FR (occurrence: FR)
  Receive Date: 20240410
  Receipt Date: 20240410
  Transmission Date: 20240715
  Serious: Yes (Hospitalization, Disabling, Other)
  Sender: FDA-Public Use
  Company Number: None

PATIENT

DRUGS (7)
  1. LEVETIRACETAM [Suspect]
     Active Substance: LEVETIRACETAM
     Indication: Epilepsy
     Dosage: UNK
     Route: 048
     Dates: start: 20211125
  2. LEVETIRACETAM [Suspect]
     Active Substance: LEVETIRACETAM
     Dosage: UNK
     Route: 065
     Dates: start: 20220509
  3. KEPPRA [Suspect]
     Active Substance: LEVETIRACETAM
     Indication: Epilepsy
     Dosage: 2 DOSAGE FORM, QD
     Route: 065
     Dates: start: 20220626
  4. NOMEGESTROL ACETATE [Suspect]
     Active Substance: NOMEGESTROL ACETATE
     Indication: Product used for unknown indication
     Dosage: UNK
     Route: 048
     Dates: start: 20210630
  5. PROMEGESTONE [Suspect]
     Active Substance: PROMEGESTONE
     Indication: Product used for unknown indication
     Dosage: UNK
     Route: 048
     Dates: start: 20190221
  6. PROMEGESTONE [Suspect]
     Active Substance: PROMEGESTONE
     Dosage: UNK
     Route: 048
     Dates: start: 201911
  7. PROMEGESTONE [Suspect]
     Active Substance: PROMEGESTONE
     Dosage: UNK
     Route: 048
     Dates: start: 20210409

REACTIONS (11)
  - Meningioma [Recovered/Resolved with Sequelae]
  - Reading disorder [Unknown]
  - Mental disorder [Unknown]
  - Oedema [Unknown]
  - Malaise [Unknown]
  - Language disorder [Not Recovered/Not Resolved]
  - Cognitive disorder [Unknown]
  - Impaired quality of life [Unknown]
  - Aphasia [Unknown]
  - Disturbance in attention [Unknown]
  - Asthenia [Not Recovered/Not Resolved]

NARRATIVE: CASE EVENT DATE: 20210906
